FAERS Safety Report 7708401-0 (Version None)
Quarter: 2011Q3

REPORT INFORMATION
  Report Type: 
  Country: None (occurrence: None)
  Receive Date: 20110825
  Receipt Date: 20110816
  Transmission Date: 20111222
  Serious: Yes (Hospitalization)
  Sender: FDA-Public Use
  Company Number: ES-ELI_LILLY_AND_COMPANY-ES201108005123

PATIENT
  Age: 69 Year
  Sex: Female

DRUGS (4)
  1. ETUMINA [Concomitant]
     Indication: DEPRESSION
     Dosage: 10 MG, QD
     Route: 048
     Dates: start: 20101014, end: 20101014
  2. ZYPREXA [Suspect]
     Indication: DEPRESSION
     Dosage: 10 MG, QD
     Route: 048
     Dates: start: 20101014, end: 20101014
  3. ANAFRANIL [Concomitant]
     Indication: DEPRESSION
     Dosage: 25 MG, QD
     Route: 042
     Dates: start: 20101014, end: 20101014
  4. MODECATE [Concomitant]
     Indication: DEPRESSION
     Dosage: 6 MG, QD
     Route: 030
     Dates: start: 20101014, end: 20101014

REACTIONS (3)
  - CONFUSIONAL STATE [None]
  - POTENTIATING DRUG INTERACTION [None]
  - OFF LABEL USE [None]
